FAERS Safety Report 15644750 (Version 6)
Quarter: 2019Q1

REPORT INFORMATION
  Report Type: Report from Study
  Country: CO (occurrence: CO)
  Receive Date: 20181121
  Receipt Date: 20190325
  Transmission Date: 20190417
  Serious: Yes (Hospitalization, Other)
  Sender: FDA-Public Use
  Company Number: CO-SA-2018SA016168

PATIENT
  Age: 47 Year
  Sex: Female

DRUGS (1)
  1. ALEMTUZUMAB [Suspect]
     Active Substance: ALEMTUZUMAB
     Indication: MULTIPLE SCLEROSIS
     Dosage: 12 MG,QD
     Route: 041
     Dates: start: 20171107, end: 20171111

REACTIONS (12)
  - Herpes zoster [Recovering/Resolving]
  - Rash [Recovering/Resolving]
  - Urinary tract infection fungal [Recovered/Resolved]
  - Blood creatinine increased [Recovered/Resolved]
  - Red blood cell count decreased [Unknown]
  - Red blood cells urine positive [Unknown]
  - Nitrituria [Unknown]
  - Urine ketone body present [Recovered/Resolved]
  - Bacteriuria [Unknown]
  - Lymphocyte count decreased [Not Recovered/Not Resolved]
  - Leukocyturia [Unknown]
  - White blood cell count decreased [Recovered/Resolved]

NARRATIVE: CASE EVENT DATE: 20180117
